FAERS Safety Report 8557566-X (Version None)
Quarter: 2012Q3

REPORT INFORMATION
  Report Type: 
  Country: None (occurrence: None)
  Receive Date: 20120801
  Receipt Date: 20120718
  Transmission Date: 20120928
  Serious: Yes (Death)
  Sender: FDA-Public Use
  Company Number: US-ARROW-2012-10578

PATIENT
  Sex: Male
  Weight: 112 kg

DRUGS (1)
  1. FENTANYL-100 [Suspect]
     Indication: PRODUCT USED FOR UNKNOWN INDICATION
     Dosage: 2 - 100MCG PATCHES ^ARE OVER THE ANTERIOR AND LATERAL RIGHT HIP^ (PER MEDICAL EXAMINER REPORT)
     Route: 062
     Dates: end: 20090201

REACTIONS (1)
  - TOXICITY TO VARIOUS AGENTS [None]
